FAERS Safety Report 6156026-3 (Version None)
Quarter: 2009Q2

REPORT INFORMATION
  Report Type: 
  Country: None (occurrence: None)
  Receive Date: 20090413
  Receipt Date: 20090413
  Transmission Date: 20091009
  Serious: Yes (Life-Threatening, Other)
  Sender: FDA-Public Use
  Company Number: None

PATIENT
  Age: 50 Year
  Sex: Male
  Weight: 72.258 kg

DRUGS (2)
  1. REMERON [Suspect]
     Indication: ANXIETY
     Dosage: INCR FROM 30 TO 45 MG 9/19/08 QHS PO
     Route: 048
     Dates: start: 20050101, end: 20081014
  2. REMERON [Suspect]
     Indication: DEPRESSION
     Dosage: INCR FROM 30 TO 45 MG 9/19/08 QHS PO
     Route: 048
     Dates: start: 20050101, end: 20081014

REACTIONS (1)
  - HYPERTRIGLYCERIDAEMIA [None]
